FAERS Safety Report 7609561-2 (Version None)
Quarter: 2011Q3

REPORT INFORMATION
  Report Type: 
  Country: None (occurrence: None)
  Receive Date: 20110714
  Receipt Date: 20110708
  Transmission Date: 20111222
  Serious: Yes (Death)
  Sender: FDA-Public Use
  Company Number: KR-PFIZER INC-2011134779

PATIENT
  Age: 19 Year
  Sex: Male

DRUGS (2)
  1. TYGACIL [Suspect]
     Indication: SKIN INFECTION
     Dosage: 100 MG, 1 TIME
     Dates: start: 20110607
  2. TYGACIL [Suspect]
     Indication: ESCHERICHIA INFECTION
     Dosage: 50 MG, EVERY 12 HOURS
     Route: 042
     Dates: end: 20110613

REACTIONS (1)
  - SEPSIS [None]
